FAERS Safety Report 5848943-6 (Version None)
Quarter: 2008Q3

REPORT INFORMATION
  Report Type: 
  Country: None (occurrence: None)
  Receive Date: 20080819
  Receipt Date: 20080811
  Transmission Date: 20090109
  Serious: Yes (Other)
  Sender: FDA-Public Use
  Company Number: PHHY2008CA15350

PATIENT
  Sex: Female

DRUGS (4)
  1. DIOVAN [Suspect]
     Indication: HYPERTENSION
     Dosage: 320 MG, QD
     Dates: start: 20080613
  2. HYDROCHLOROTHIAZIDE [Concomitant]
     Dosage: 12.5 MG, QD
     Dates: start: 20080613
  3. SYNTHROID [Concomitant]
     Dosage: 0.075 MG, QD
  4. BROMAZEPAM [Concomitant]
     Dosage: 3 MG, QD

REACTIONS (2)
  - ASTHENOPIA [None]
  - EYELID PTOSIS [None]
